FAERS Safety Report 24454531 (Version 2)
Quarter: 2024Q4

REPORT INFORMATION
  Report Type: Report from Study
  Country: FR (occurrence: FR)
  Receive Date: 20241017
  Receipt Date: 20241018
  Transmission Date: 20250115
  Serious: No
  Sender: ROCHE
  Company Number: FR-ROCHE-3468698

PATIENT

DRUGS (4)
  1. RITUXIMAB [Suspect]
     Active Substance: RITUXIMAB
     Indication: Acquired C1 inhibitor deficiency
     Route: 065
  2. TRANEXAMIC ACID [Concomitant]
     Active Substance: TRANEXAMIC ACID
  3. DANAZOL [Concomitant]
     Active Substance: DANAZOL
  4. LANADELUMAB [Concomitant]
     Active Substance: LANADELUMAB

REACTIONS (2)
  - Off label use [Unknown]
  - No adverse event [Unknown]
